FAERS Safety Report 25910384 (Version 1)
Quarter: 2025Q4

REPORT INFORMATION
  Report Type: Spontaneous
  Country: GB (occurrence: GB)
  Receive Date: 20251012
  Receipt Date: 20251012
  Transmission Date: 20260117
  Serious: Yes (Hospitalization, Disabling, Other)
  Sender: ABBVIE
  Company Number: GB-MHRA-MIDB-54508c5d-3319-474f-9734-e4cdc3d93ea9

PATIENT
  Age: 30 Year

DRUGS (3)
  1. UPADACITINIB [Suspect]
     Active Substance: UPADACITINIB
     Indication: Product used for unknown indication
     Route: 048
     Dates: end: 202502
  2. PREDNISOLONE [Concomitant]
     Active Substance: PREDNISOLONE
     Indication: Product used for unknown indication
     Dates: start: 202311, end: 202402
  3. USTEKINUMAB [Concomitant]
     Active Substance: USTEKINUMAB
     Indication: Product used for unknown indication
     Dates: start: 202404, end: 202501

REACTIONS (3)
  - Meningitis bacterial [Unknown]
  - Encephalitis meningococcal [Unknown]
  - Sepsis [Unknown]
